FAERS Safety Report 24646355 (Version 1)
Quarter: 2024Q4

REPORT INFORMATION
  Report Type: Spontaneous
  Country: PL (occurrence: PL)
  Receive Date: 20241121
  Receipt Date: 20241121
  Transmission Date: 20250114
  Serious: Yes (Life-Threatening, Hospitalization)
  Sender: MACLEODS
  Company Number: PL-MLMSERVICE-20241106-PI250432-00136-1

PATIENT

DRUGS (1)
  1. ESCITALOPRAM [Suspect]
     Active Substance: ESCITALOPRAM OXALATE
     Indication: Depression
     Dosage: TAKING FOR A YEAR
     Route: 065

REACTIONS (8)
  - Stress cardiomyopathy [Unknown]
  - Respiratory failure [Recovering/Resolving]
  - Haemodynamic instability [Recovering/Resolving]
  - Cardiogenic shock [Unknown]
  - Circulatory collapse [Unknown]
  - Acute myocardial infarction [Unknown]
  - Hepatic failure [Unknown]
  - Acute kidney injury [Unknown]
